FAERS Safety Report 23862456 (Version 1)
Quarter: 2024Q2

REPORT INFORMATION
  Report Type: Report from Study
  Country: US (occurrence: US)
  Receive Date: 20240516
  Receipt Date: 20240516
  Transmission Date: 20240716
  Serious: Yes (Other)
  Sender: FDA-Public Use
  Company Number: US-ABBVIE-5759889

PATIENT
  Sex: Female

DRUGS (1)
  1. HUMIRA [Suspect]
     Active Substance: ADALIMUMAB
     Indication: Psoriatic arthropathy
     Route: 058
     Dates: start: 20231112

REACTIONS (7)
  - Glaucoma [Recovering/Resolving]
  - Inflammation [Recovering/Resolving]
  - Embolism [Unknown]
  - Limb discomfort [Recovering/Resolving]
  - Pain in extremity [Unknown]
  - Eye haemorrhage [Unknown]
  - Vision blurred [Unknown]
